FAERS Safety Report 5325526-8 (Version None)
Quarter: 2007Q2

REPORT INFORMATION
  Report Type: 
  Country: None (occurrence: None)
  Receive Date: 20070515
  Receipt Date: 20070503
  Transmission Date: 20071010
  Serious: Yes (Other)
  Sender: FDA-Public Use
  Company Number: BR-PFIZER INC-2007036905

PATIENT
  Sex: Female
  Weight: 70 kg

DRUGS (8)
  1. SILDENAFIL (PAH) [Suspect]
     Indication: PULMONARY HYPERTENSION
     Route: 048
  2. RIVOTRIL [Concomitant]
     Route: 048
  3. METICORTEN [Concomitant]
     Route: 048
  4. ALL OTHER THERAPEUTIC PRODUCTS [Concomitant]
  5. MODURETIC 5-50 [Concomitant]
     Route: 048
  6. WARFARIN SODIUM [Concomitant]
     Route: 048
  7. ALL OTHER THERAPEUTIC PRODUCTS [Concomitant]
  8. PANTOZOL [Concomitant]
     Route: 048

REACTIONS (3)
  - CEREBRAL ISCHAEMIA [None]
  - CONVULSION [None]
  - RESPIRATORY TRACT INFECTION [None]
